FAERS Safety Report 15844800 (Version 1)
Quarter: 2019Q1

REPORT INFORMATION
  Report Type: Spontaneous
  Country: DE (occurrence: DE)
  Receive Date: 20190118
  Receipt Date: 20190118
  Transmission Date: 20190417
  Serious: Yes (Other)
  Sender: FDA-Public Use
  Company Number: DE-PFIZER INC-2019020791

PATIENT
  Age: 22 Year
  Sex: Female

DRUGS (3)
  1. TAVOR (LORAZEPAM) [Suspect]
     Active Substance: LORAZEPAM
     Dosage: 50 MG, 1X PER DAY
     Route: 048
     Dates: start: 20181223, end: 20181223
  2. QUETIAPINE TAD [Suspect]
     Active Substance: QUETIAPINE
     Dosage: 2000 MG, 1X PER DAY
     Route: 048
     Dates: start: 20181223, end: 20181223
  3. QUETIAPINE TAD [Suspect]
     Active Substance: QUETIAPINE
     Dosage: 1000 MG, 1X PER DAY
     Route: 048
     Dates: start: 20181223, end: 20181223

REACTIONS (4)
  - Suicidal ideation [Unknown]
  - Somnolence [Unknown]
  - Tachycardia [Unknown]
  - Overdose [Unknown]

NARRATIVE: CASE EVENT DATE: 20181223
